FAERS Safety Report 13927305 (Version 3)
Quarter: 2017Q4

REPORT INFORMATION
  Report Type: Spontaneous
  Country: FR (occurrence: FR)
  Receive Date: 20170901
  Receipt Date: 20171011
  Transmission Date: 20180320
  Serious: Yes (Hospitalization)
  Sender: FDA-Public Use
  Company Number: FR-CELGENEUS-FRA-2017031689

PATIENT
  Age: 79 Year
  Sex: Female
  Weight: 49 kg

DRUGS (36)
  1. LEVOTHYROXINE. [Concomitant]
     Active Substance: LEVOTHYROXINE
     Indication: HYPOTHYROIDISM
     Dosage: 100 MICROGRAM
     Route: 048
     Dates: start: 2004
  2. PANTOPRAZOLE [Concomitant]
     Active Substance: PANTOPRAZOLE
     Indication: ABDOMINAL PAIN UPPER
     Dosage: 20 MILLIGRAM
     Route: 048
     Dates: start: 2004
  3. VALACICLOVIR [Concomitant]
     Active Substance: VALACYCLOVIR HYDROCHLORIDE
     Indication: INFECTION PROPHYLAXIS
     Dosage: 1000 MILLIGRAM
     Route: 048
     Dates: start: 20151123
  4. DEXAMETHASONE ORAL [Suspect]
     Active Substance: DEXAMETHASONE
     Indication: PLASMA CELL MYELOMA
     Route: 048
     Dates: start: 20151123, end: 20151228
  5. TINZAPARINE SODIQUE [Concomitant]
     Indication: THROMBOSIS PROPHYLAXIS
     Dosage: .05 MILLILITER
     Route: 058
     Dates: start: 20151123
  6. EDUCTYL [Concomitant]
     Active Substance: POTASSIUM BITARTRATE\SODIUM BICARBONATE
     Indication: CONSTIPATION
     Route: 054
     Dates: start: 20170221, end: 20170318
  7. REVLIMID [Suspect]
     Active Substance: LENALIDOMIDE
     Dosage: 10 MILLIGRAM
     Route: 048
     Dates: start: 20170720
  8. DARATUMUMAB [Suspect]
     Active Substance: DARATUMUMAB
     Indication: PLASMA CELL MYELOMA
     Dosage: 840 MILLIGRAM
     Route: 041
     Dates: start: 20151123
  9. DOMPERIDONE [Concomitant]
     Active Substance: DOMPERIDONE
     Indication: NAUSEA
     Dosage: 30 MILLIGRAM
     Route: 048
     Dates: start: 2004
  10. TINZAPARINE SODIQUE [Concomitant]
     Dosage: 3500 IU (INTERNATIONAL UNIT)
     Route: 058
     Dates: start: 20160322
  11. REVLIMID [Suspect]
     Active Substance: LENALIDOMIDE
     Dosage: 10 MILLIGRAM
     Route: 048
     Dates: start: 20170125
  12. DARATUMUMAB [Suspect]
     Active Substance: DARATUMUMAB
     Dosage: 840 MILLIGRAM
     Route: 041
     Dates: start: 20170720
  13. DEXAMETHASONE ORAL [Suspect]
     Active Substance: DEXAMETHASONE
     Route: 048
     Dates: start: 20160104, end: 20160607
  14. LOVENOX [Concomitant]
     Active Substance: ENOXAPARIN SODIUM
     Indication: THROMBOSIS PROPHYLAXIS
     Dosage: 4000 IU (INTERNATIONAL UNIT)
     Route: 058
     Dates: start: 20160128
  15. FLUCONAZOLE. [Concomitant]
     Active Substance: FLUCONAZOLE
     Indication: MUCOSAL INFLAMMATION
     Dosage: 50 MICROGRAM
     Route: 048
     Dates: start: 20160118, end: 20160125
  16. DARATUMUMAB [Suspect]
     Active Substance: DARATUMUMAB
     Dosage: 840 MILLIGRAM
     Route: 041
     Dates: start: 20170125
  17. FENTANYL. [Concomitant]
     Active Substance: FENTANYL
     Indication: PELVIC PAIN
  18. FENTANYL CITRATE. [Concomitant]
     Active Substance: FENTANYL CITRATE
     Indication: BONE PAIN
     Dosage: 100 MICROGRAM
     Route: 048
     Dates: start: 20151104
  19. DIOSMECTITE [Concomitant]
     Active Substance: MONTMORILLONITE
     Indication: INFECTION PROPHYLAXIS
     Dosage: 9 GRAM
     Route: 048
     Dates: start: 20151130
  20. REVLIMID [Suspect]
     Active Substance: LENALIDOMIDE
     Indication: PLASMA CELL MYELOMA
     Dosage: 10 MILLIGRAM
     Route: 048
     Dates: start: 20151123
  21. DEXAMETHASONE ORAL [Suspect]
     Active Substance: DEXAMETHASONE
     Route: 048
     Dates: start: 20160613, end: 20160613
  22. CICLETANINE HYDROCHLORIDE [Concomitant]
     Active Substance: CICLETANINE HYDROCHLORIDE
     Indication: HYPERTENSION
     Dosage: 100 MILLIGRAM
     Route: 048
     Dates: start: 20151002
  23. BROMAZEPAM [Concomitant]
     Active Substance: BROMAZEPAM
     Indication: DEPRESSION
     Dosage: 1.5 MILLIGRAM
     Route: 048
     Dates: start: 2004
  24. PARACETAMOL [Concomitant]
     Active Substance: ACETAMINOPHEN
     Indication: NAUSEA
     Dosage: 3 GRAM
     Route: 048
     Dates: start: 201506
  25. DEXAMETHASONE ORAL [Suspect]
     Active Substance: DEXAMETHASONE
     Route: 048
     Dates: start: 20170810
  26. FENTANYL. [Concomitant]
     Active Substance: FENTANYL
     Indication: NAUSEA
     Route: 061
     Dates: start: 20151112
  27. LOVENOX [Concomitant]
     Active Substance: ENOXAPARIN SODIUM
     Dosage: .4 MILLILITER
     Route: 058
     Dates: start: 20160128
  28. IMODIUM [Concomitant]
     Active Substance: LOPERAMIDE HYDROCHLORIDE
     Indication: DIARRHOEA
     Route: 048
     Dates: start: 20151214
  29. FOLIC ACID. [Concomitant]
     Active Substance: FOLIC ACID
     Indication: ANAEMIA
     Dosage: 5 MILLIGRAM
     Route: 048
     Dates: start: 2004
  30. MACROGOL [Concomitant]
     Active Substance: POLYETHYLENE GLYCOLS
     Indication: CONSTIPATION
     Dosage: 10 GRAM
     Route: 065
     Dates: start: 20170220
  31. DEXAMETHASONE ORAL [Suspect]
     Active Substance: DEXAMETHASONE
     Route: 048
     Dates: start: 20160620, end: 20170215
  32. PRAVASTATIN. [Concomitant]
     Active Substance: PRAVASTATIN
     Indication: HYPERCHOLESTEROLAEMIA
     Dosage: 20 MILLIGRAM
     Route: 048
     Dates: start: 2004
  33. LEVOTHYROXINE. [Concomitant]
     Active Substance: LEVOTHYROXINE
     Dosage: 75 MICROGRAM
     Route: 048
  34. EPOETIN BETA [Concomitant]
     Active Substance: ERYTHROPOIETIN
     Indication: ANAEMIA
     Dosage: 4285.7143 IU (INTERNATIONAL UNIT)
     Route: 058
     Dates: start: 20151130
  35. DIFFU K [Concomitant]
     Active Substance: POTASSIUM CHLORIDE
     Indication: HYPOKALAEMIA
     Dosage: MILLIGRAM
     Route: 048
     Dates: start: 20170221
  36. UVEDOSE [Concomitant]
     Active Substance: CHOLECALCIFEROL
     Indication: VITAMIN D DEFICIENCY
     Route: 048
     Dates: start: 20170221

REACTIONS (3)
  - Hypokalaemia [Not Recovered/Not Resolved]
  - Intervertebral disc compression [Recovered/Resolved with Sequelae]
  - Fall [Recovered/Resolved with Sequelae]

NARRATIVE: CASE EVENT DATE: 20170220
